FAERS Safety Report 9900451 (Version 1)
Quarter: 2014Q1

REPORT INFORMATION
  Report Type: Spontaneous
  Country: US (occurrence: US)
  Receive Date: 20140217
  Receipt Date: 20140217
  Transmission Date: 20141002
  Serious: Yes (Hospitalization)
  Sender: FDA-Public Use
  Company Number: US-BIOGENIDEC-2014BI012477

PATIENT
  Sex: Female

DRUGS (3)
  1. AVONEX [Suspect]
     Indication: MULTIPLE SCLEROSIS
     Route: 030
  2. ONDANSETRON HCI [Concomitant]
  3. OXYCODONE HCI [Concomitant]

REACTIONS (3)
  - Coordination abnormal [Unknown]
  - Loss of control of legs [Unknown]
  - Musculoskeletal stiffness [Unknown]
